FAERS Safety Report 20151244 (Version 1)
Quarter: 2021Q4

REPORT INFORMATION
  Report Type: Spontaneous
  Country: DE (occurrence: DE)
  Receive Date: 20211206
  Receipt Date: 20211206
  Transmission Date: 20220303
  Serious: Yes (Other)
  Sender: FDA-Public Use
  Company Number: DE-SANOFI-00877683

PATIENT
  Sex: Male

DRUGS (1)
  1. DUPIXENT [Suspect]
     Active Substance: DUPILUMAB
     Indication: Dermatitis atopic
     Dosage: 300 MG, QOW
     Dates: start: 202108

REACTIONS (3)
  - Thrombocytopenia [Unknown]
  - Alanine aminotransferase increased [Unknown]
  - Eosinophilia [Unknown]

NARRATIVE: CASE EVENT DATE: 20210101
